FAERS Safety Report 9915143 (Version 2)
Quarter: 2014Q1

REPORT INFORMATION
  Report Type: Spontaneous
  Country: FR (occurrence: FR)
  Receive Date: 20140220
  Receipt Date: 20140220
  Transmission Date: 20141002
  Serious: Yes (Hospitalization)
  Sender: FDA-Public Use
  Company Number: FR-ELI_LILLY_AND_COMPANY-FR93072941A

PATIENT
  Sex: Female
  Weight: 19 kg

DRUGS (1)
  1. HUMATROPE [Suspect]
     Indication: TURNER^S SYNDROME
     Dosage: 4 U, DAILY (1/D)
     Route: 065
     Dates: start: 199011

REACTIONS (3)
  - Visual acuity reduced [Unknown]
  - Amblyopia [Unknown]
  - Retinal disorder [Unknown]
